FAERS Safety Report 20891664 (Version 2)
Quarter: 2022Q2

REPORT INFORMATION
  Report Type: Report from Study
  Country: US (occurrence: US)
  Receive Date: 20220530
  Receipt Date: 20220607
  Transmission Date: 20220720
  Serious: No
  Sender: FDA-Public Use
  Company Number: US-BRISTOL-MYERS SQUIBB COMPANY-2022-049102

PATIENT
  Age: 66 Year
  Sex: Male
  Weight: 78 kg

DRUGS (3)
  1. IPILIMUMAB [Suspect]
     Active Substance: IPILIMUMAB
     Indication: Oesophageal carcinoma
     Dosage: MOST RECENT DOSE WAS RECEIVED PRIOR TO THE EVENT ON 29-JUL-2019?MOST RECENT DOSE RECEIVED ON  12-APR
     Route: 042
     Dates: start: 20190502
  2. DUREZOL [Concomitant]
     Active Substance: DIFLUPREDNATE
     Indication: Product used for unknown indication
     Dosage: 1 DOSAGE FORM - 3UNITS?EYE DROPS
     Route: 047
     Dates: start: 20190905, end: 20190920
  3. ONDANSETRON [Concomitant]
     Active Substance: ONDANSETRON
     Indication: Product used for unknown indication
     Route: 048
     Dates: start: 20190905, end: 20190907

REACTIONS (1)
  - Adrenal insufficiency [Recovered/Resolved]

NARRATIVE: CASE EVENT DATE: 20190907
